FAERS Safety Report 7635949-X (Version None)
Quarter: 2011Q3

REPORT INFORMATION
  Report Type: 
  Country: None (occurrence: None)
  Receive Date: 20110726
  Receipt Date: 20110711
  Transmission Date: 20111222
  Serious: Yes (Hospitalization, Other)
  Sender: FDA-Public Use
  Company Number: JP-ROCHE-704992

PATIENT
  Age: 56 Year
  Sex: Male

DRUGS (5)
  1. AVASTIN [Suspect]
     Dosage: NOTE: DOSAGE IS UNCERTAIN.
     Route: 041
     Dates: end: 20090101
  2. FLUOROURACIL [Concomitant]
     Dosage: NOTE: DOSAGE IS UNCERTAIN.
     Route: 040
     Dates: end: 20090101
  3. FLUOROURACIL [Concomitant]
     Dosage: NOTE: DOSAGE IS UNCERTAIN.
     Route: 041
     Dates: end: 20090101
  4. IRINOTECAN HCL [Concomitant]
     Dosage: NOTE: DOSAGE IS UNCERTAIN.
     Route: 041
     Dates: end: 20090101
  5. LEUCOVORIN CALCIUM [Concomitant]
     Dosage: NOTE: DOSAGE IS UNCERTAIN.
     Route: 041
     Dates: end: 20090101

REACTIONS (3)
  - POST PROCEDURAL HAEMORRHAGE [None]
  - HYDRONEPHROSIS [None]
  - HAEMOGLOBIN DECREASED [None]
